FAERS Safety Report 8096416-5 (Version None)
Quarter: 2012Q1

REPORT INFORMATION
  Report Type: 
  Country: None (occurrence: None)
  Receive Date: 20120129
  Receipt Date: 20111213
  Transmission Date: 20120608
  Serious: No
  Sender: FDA-Public Use
  Company Number: US-ABBOTT-11P-163-0883049-00

PATIENT
  Age: 29 Year
  Sex: Female

DRUGS (5)
  1. PRILOSEC [Concomitant]
     Indication: ULCER
  2. BIRTH CONTROL PILL [Concomitant]
     Indication: PRODUCT USED FOR UNKNOWN INDICATION
  3. HUMIRA [Suspect]
     Indication: PSORIASIS
     Dosage: INITIAL DOSE
     Dates: start: 20111209
  4. SAVELLA [Concomitant]
     Indication: FIBROMYALGIA
  5. ZYRTEC [Concomitant]
     Indication: HYPERSENSITIVITY

REACTIONS (1)
  - CONTUSION [None]
